FAERS Safety Report 10345246 (Version 1)
Quarter: 2014Q3

REPORT INFORMATION
  Report Type: Spontaneous
  Country: US (occurrence: None)
  Receive Date: 20140724
  Receipt Date: 20140724
  Transmission Date: 20150326
  Serious: Yes (Hospitalization)
  Sender: FDA-Public Use
  Company Number: None

PATIENT
  Age: 60 Year
  Sex: Male

DRUGS (8)
  1. PROCRIT SHOTS [Concomitant]
  2. VITAMINS [Concomitant]
     Active Substance: VITAMINS
  3. CIPRO [Concomitant]
     Active Substance: CIPROFLOXACIN HYDROCHLORIDE
  4. SELENIUM [Concomitant]
     Active Substance: SELENIUM
  5. LIPITOR [Suspect]
     Active Substance: ATORVASTATIN CALCIUM
     Indication: DRUG THERAPY
     Dosage: THERAPY DATE?LATE 90^S + 2000 BEGINNING UTIL DEATH = BOTH PARENTS?TILL DEATH
     Route: 048
  6. LASIX [Concomitant]
     Active Substance: FUROSEMIDE
  7. ALLOPURINOL. [Concomitant]
     Active Substance: ALLOPURINOL
  8. WARFARIN [Concomitant]
     Active Substance: WARFARIN

REACTIONS (5)
  - Decreased activity [None]
  - Insomnia [None]
  - Pollakiuria [None]
  - Fatigue [None]
  - Abdominal discomfort [None]
